FAERS Safety Report 5308155-1 (Version None)
Quarter: 2007Q2

REPORT INFORMATION
  Report Type: 
  Country: None (occurrence: None)
  Receive Date: 20070426
  Receipt Date: 20070419
  Transmission Date: 20071010
  Serious: Yes (Other)
  Sender: FDA-Public Use
  Company Number: PHEH2007US05791

PATIENT
  Age: 56 Year
  Sex: Female

DRUGS (14)
  1. CELEBREX [Concomitant]
  2. SYNTHROID [Concomitant]
  3. SKELAXIN [Concomitant]
  4. PROZAC [Concomitant]
  5. OXYBUTYNIN CHLORIDE [Concomitant]
  6. VAGIFEM [Concomitant]
  7. CALCIUM [Concomitant]
  8. TRAZODONE HCL [Concomitant]
  9. LASIX [Concomitant]
  10. NIACIN [Concomitant]
  11. VITAMIN CAP [Concomitant]
  12. VITAMIN B-12 [Concomitant]
  13. VITAMIN B6 [Concomitant]
  14. ZELNORM [Suspect]
     Indication: CONSTIPATION
     Dosage: 6 MG, BID
     Route: 048
     Dates: start: 20060101

REACTIONS (3)
  - AMNESIA [None]
  - BLOOD PRESSURE INCREASED [None]
  - CEREBROVASCULAR ACCIDENT [None]
